FAERS Safety Report 6249740-2 (Version None)
Quarter: 2009Q2

REPORT INFORMATION
  Report Type: 
  Country: None (occurrence: None)
  Receive Date: 20090625
  Receipt Date: 20090625
  Transmission Date: 20091009
  Serious: Yes (Hospitalization)
  Sender: FDA-Public Use
  Company Number: None

PATIENT
  Age: 66 Year
  Sex: Female

DRUGS (1)
  1. BLEOMYCIN SULFATE [Suspect]
     Dosage: CUMULATIVE NASAL
     Route: 045

REACTIONS (1)
  - PNEUMONITIS [None]
